FAERS Safety Report 4285782-4 (Version None)
Quarter: 2004Q1

REPORT INFORMATION
  Report Type: 
  Country: None (occurrence: None)
  Receive Date: 20040203
  Receipt Date: 20040126
  Transmission Date: 20041129
  Serious: Yes (Death, Hospitalization)
  Sender: FDA-Public Use
  Company Number: STA-AE-03-MTX-099

PATIENT
  Age: 72 Year
  Sex: Male

DRUGS (5)
  1. RHEUMATREX [Suspect]
     Indication: RHEUMATOID ARTHRITIS
     Dosage: 8MG 1X PER 1 WK-ORAL
     Route: 048
     Dates: end: 20030601
  2. SHIOSOL (SODIUM AUROTHIOMALATE) [Concomitant]
  3. AZULFIDINE (SULFASALIZINE) [Concomitant]
  4. CLINORIL [Concomitant]
  5. VOLTAREN [Concomitant]

REACTIONS (12)
  - ANOREXIA [None]
  - BLOOD CREATININE INCREASED [None]
  - C-REACTIVE PROTEIN INCREASED [None]
  - EOSINOPHIL PERCENTAGE INCREASED [None]
  - FUNGAL INFECTION [None]
  - INFLAMMATION [None]
  - LYMPHOCYTE PERCENTAGE INCREASED [None]
  - MULTI-ORGAN FAILURE [None]
  - NEUTROPHIL PERCENTAGE DECREASED [None]
  - PANCYTOPENIA [None]
  - STAPHYLOCOCCAL INFECTION [None]
  - STOMATITIS [None]
